FAERS Safety Report 5673723-4 (Version None)
Quarter: 2008Q2

REPORT INFORMATION
  Report Type: 
  Country: None (occurrence: None)
  Receive Date: 20080226
  Receipt Date: 20071008
  Transmission Date: 20081010
  Serious: Yes (Other)
  Sender: FDA-Public Use
  Company Number: 523749

PATIENT
  Age: 46 Year

DRUGS (1)
  1. ACCUTANE [Suspect]
     Indication: ACNE CYSTIC
     Dates: start: 19830615

REACTIONS (7)
  - COLITIS ULCERATIVE [None]
  - DRY SKIN [None]
  - GASTROINTESTINAL DISORDER [None]
  - GASTROINTESTINAL MOTILITY DISORDER [None]
  - HIATUS HERNIA [None]
  - LACTOSE INTOLERANCE [None]
  - POLYPECTOMY [None]
